FAERS Safety Report 17720927 (Version 3)
Quarter: 2025Q3

REPORT INFORMATION
  Report Type: Spontaneous
  Country: EU (occurrence: EU)
  Receive Date: 20200428
  Receipt Date: 20250703
  Transmission Date: 20251020
  Serious: Yes (Other)
  Sender: AUROBINDO
  Company Number: EU-VIIV HEALTHCARE LIMITED-PT2020EME062788

PATIENT
  Age: 69 Year
  Sex: Male

DRUGS (4)
  1. ABACAVIR SULFATE\LAMIVUDINE [Suspect]
     Active Substance: ABACAVIR SULFATE\LAMIVUDINE
     Indication: HIV infection
     Route: 065
  2. DOLUTEGRAVIR [Interacting]
     Active Substance: DOLUTEGRAVIR
     Indication: HIV infection
     Route: 065
  3. SORAFENIB [Interacting]
     Active Substance: SORAFENIB
     Indication: Hepatocellular carcinoma
     Dosage: 800 MILLIGRAM, ONCE A DAY
     Route: 065
  4. LEDIPASVIR\SOFOSBUVIR [Concomitant]
     Active Substance: LEDIPASVIR\SOFOSBUVIR
     Indication: Hepatitis C
     Route: 065

REACTIONS (6)
  - Nodule [Recovering/Resolving]
  - Hepatocellular carcinoma [Recovered/Resolved]
  - Diarrhoea [Recovering/Resolving]
  - Alpha 1 foetoprotein increased [Recovered/Resolved]
  - Portal vein thrombosis [Recovering/Resolving]
  - Drug interaction [Unknown]
